FAERS Safety Report 13011041 (Version 1)
Quarter: 2016Q4

REPORT INFORMATION
  Report Type: Spontaneous
  Country: US (occurrence: US)
  Receive Date: 20161208
  Receipt Date: 20161208
  Transmission Date: 20170207
  Serious: No
  Sender: FDA-Public Use
  Company Number: US-ASTRAZENECA-2016SF21682

PATIENT
  Age: 32267 Day
  Sex: Female
  Weight: 54.4 kg

DRUGS (1)
  1. SYMBICORT [Suspect]
     Active Substance: BUDESONIDE\FORMOTEROL FUMARATE DIHYDRATE
     Indication: ASTHMA
     Dosage: 160-4.5, 2 PUFFS IN THE MORNING AND AT NIGHT
     Route: 048
     Dates: start: 20161109

REACTIONS (3)
  - Muscle spasms [Not Recovered/Not Resolved]
  - Dysphonia [Recovered/Resolved]
  - Epistaxis [Unknown]

NARRATIVE: CASE EVENT DATE: 20161109
